FAERS Safety Report 7017903-4 (Version None)
Quarter: 2010Q3

REPORT INFORMATION
  Report Type: 
  Country: None (occurrence: None)
  Receive Date: 20100928
  Receipt Date: 20100915
  Transmission Date: 20110219
  Serious: Yes (Death)
  Sender: FDA-Public Use
  Company Number: US-ELI_LILLY_AND_COMPANY-US201009004047

PATIENT
  Age: 85 Year
  Sex: Female

DRUGS (1)
  1. ZYPREXA [Suspect]
     Indication: BIPOLAR I DISORDER
     Dosage: 2.5 MG, UNK

REACTIONS (2)
  - DEATH [None]
  - FALL [None]
